FAERS Safety Report 16766798 (Version 1)
Quarter: 2019Q3

REPORT INFORMATION
  Report Type: Spontaneous
  Country: US (occurrence: US)
  Receive Date: 20190903
  Receipt Date: 20190903
  Transmission Date: 20191005
  Serious: Yes (Other)
  Sender: FDA-Public Use
  Company Number: US-BAUSCH-BL-2019-024365

PATIENT
  Sex: Female

DRUGS (5)
  1. MURO 128 [Suspect]
     Active Substance: SODIUM CHLORIDE
     Indication: CORNEAL OEDEMA
     Dosage: IN MORNING
     Route: 065
     Dates: start: 20190724, end: 20190725
  2. MURO 128 [Suspect]
     Active Substance: SODIUM CHLORIDE
     Indication: CORNEAL OEDEMA
     Dosage: IN NIGHT
     Route: 065
     Dates: start: 20190724, end: 20190725
  3. OFLOXACIN. [Concomitant]
     Active Substance: OFLOXACIN
     Indication: PRODUCT USED FOR UNKNOWN INDICATION
     Dosage: UNKNOWN TIMES DAILY
  4. OPTI FREE [Concomitant]
     Active Substance: PANCRELIPASE\TYROSINE
     Indication: PRODUCT USED FOR UNKNOWN INDICATION
  5. PREDNISOLONE. [Concomitant]
     Active Substance: PREDNISOLONE
     Indication: PRODUCT USED FOR UNKNOWN INDICATION
     Dosage: EVERY 2 HOURS
     Route: 047

REACTIONS (10)
  - Swelling of eyelid [Recovering/Resolving]
  - Eye pain [Recovering/Resolving]
  - Condition aggravated [Recovering/Resolving]
  - Drug hypersensitivity [Unknown]
  - Corneal oedema [Recovering/Resolving]
  - Ocular hyperaemia [Recovering/Resolving]
  - Visual impairment [Recovering/Resolving]
  - Adverse event [Unknown]
  - Eye irritation [Recovering/Resolving]
  - Eye swelling [Recovering/Resolving]

NARRATIVE: CASE EVENT DATE: 20190725
